FAERS Safety Report 24636492 (Version 4)
Quarter: 2025Q3

REPORT INFORMATION
  Report Type: Spontaneous
  Country: JP (occurrence: JP)
  Receive Date: 20241119
  Receipt Date: 20250926
  Transmission Date: 20251020
  Serious: Yes (Other)
  Sender: NOVARTIS
  Company Number: JP-002147023-NVSJ2024JP013505

PATIENT
  Age: 2 Month
  Sex: Male

DRUGS (3)
  1. OCTREOTIDE ACETATE [Suspect]
     Active Substance: OCTREOTIDE ACETATE
     Indication: Congenital hyperinsulinaemic hypoglycaemia
     Route: 058
  2. OCTREOTIDE ACETATE [Suspect]
     Active Substance: OCTREOTIDE ACETATE
  3. OCTREOTIDE ACETATE [Suspect]
     Active Substance: OCTREOTIDE ACETATE

REACTIONS (4)
  - Necrotising enterocolitis neonatal [Recovered/Resolved]
  - Abdominal distension [Unknown]
  - Septic shock [Unknown]
  - Blood pressure decreased [Unknown]
